FAERS Safety Report 9046979 (Version 1)
Quarter: 2013Q1

REPORT INFORMATION
  Report Type: Spontaneous
  Country: FR (occurrence: FR)
  Receive Date: 20130204
  Receipt Date: 20130204
  Transmission Date: 20140127
  Serious: Yes (Hospitalization)
  Sender: FDA-Public Use
  Company Number: FR-ELI_LILLY_AND_COMPANY-FR201301009476

PATIENT
  Age: 89 None
  Sex: Female

DRUGS (4)
  1. ZYPREXA [Suspect]
     Indication: DEPRESSION
     Dosage: 5 MG, QD
     Route: 048
     Dates: start: 20121022, end: 20121107
  2. MIANSERIN [Concomitant]
     Dosage: 30 MG, QD
     Dates: start: 20121005, end: 20121113
  3. RISPERDALORO [Concomitant]
     Indication: DEPRESSION
     Dosage: 0.5 MG, QD
     Dates: start: 20121107, end: 20121113
  4. ATARAX [Concomitant]
     Indication: DEPRESSION
     Dosage: 25 MG, QD
     Dates: start: 20121015

REACTIONS (2)
  - Agranulocytosis [Recovered/Resolved]
  - Off label use [Recovered/Resolved]
